FAERS Safety Report 13657068 (Version 1)
Quarter: 2017Q2

REPORT INFORMATION
  Report Type: Report from Study
  Country: US (occurrence: US)
  Receive Date: 20170615
  Receipt Date: 20170615
  Transmission Date: 20170830
  Serious: Yes (Other)
  Sender: FDA-Public Use
  Company Number: PHEH2017US017541

PATIENT
  Age: 55 Year
  Sex: Female

DRUGS (2)
  1. GLEEVEC [Suspect]
     Active Substance: IMATINIB MESYLATE
     Indication: LYMPHOMA
     Dosage: 400 MG, UNK
     Route: 065
  2. GLEEVEC [Suspect]
     Active Substance: IMATINIB MESYLATE
     Indication: LEUKAEMIA
     Dosage: UNK, QOD
     Route: 065

REACTIONS (7)
  - Muscle spasms [Unknown]
  - Pain [Unknown]
  - Femur fracture [Unknown]
  - Hypoaesthesia [Unknown]
  - Pneumonia [Unknown]
  - Amnesia [Unknown]
  - Neuropathy peripheral [Unknown]
